FAERS Safety Report 5725489-7 (Version None)
Quarter: 2008Q2

REPORT INFORMATION
  Report Type: 
  Country: None (occurrence: None)
  Receive Date: 20080501
  Receipt Date: 20080423
  Transmission Date: 20081010
  Serious: Yes (Hospitalization)
  Sender: FDA-Public Use
  Company Number: BR-JNJFOC-20080406605

PATIENT
  Age: 3 Year
  Sex: Male
  Weight: 14 kg

DRUGS (2)
  1. HALDOL [Suspect]
     Route: 048
  2. HALDOL [Suspect]
     Indication: DRUG USE FOR UNKNOWN INDICATION
     Route: 048

REACTIONS (5)
  - DEPRESSED LEVEL OF CONSCIOUSNESS [None]
  - DYSTONIA [None]
  - INCORRECT DOSE ADMINISTERED [None]
  - OXYGEN SATURATION DECREASED [None]
  - SOMNOLENCE [None]
